FAERS Safety Report 15044879 (Version 2)
Quarter: 2018Q3

REPORT INFORMATION
  Report Type: Spontaneous
  Country: DE (occurrence: DE)
  Receive Date: 20180621
  Receipt Date: 20180720
  Transmission Date: 20181010
  Serious: Yes (Hospitalization)
  Sender: FDA-Public Use
  Company Number: DE-TEVA-2018-DE-911804

PATIENT
  Age: 88 Year
  Sex: Male
  Weight: 90 kg

DRUGS (11)
  1. RAMIPRIL. [Suspect]
     Active Substance: RAMIPRIL
     Dosage: 10 MILLIGRAM DAILY; 10 MG, 1?0?0?0
     Route: 065
  2. EISEN [Concomitant]
     Dosage: 100 MG, QOD
     Route: 065
  3. HYDROCHLOROTHIAZIDE. [Suspect]
     Active Substance: HYDROCHLOROTHIAZIDE
     Dosage: 25 MILLIGRAM DAILY; 25 MG, 1?0?0?0
  4. LOCOL (FLUVASTATIN SODIUM) [Concomitant]
     Active Substance: FLUVASTATIN SODIUM
     Dosage: 20 MILLIGRAM DAILY; 20 MG, 0?0?1?0
  5. ASS 100 [Concomitant]
     Active Substance: ASPIRIN
     Dosage: 100 MILLIGRAM DAILY; 100 MG, 1?0?0?0
  6. EISEN [Concomitant]
     Dosage: 100 MG, 0?0?1?0/JEDEN 2. TAG
  7. INSULIN HUMAN [Concomitant]
     Active Substance: INSULIN HUMAN
     Dosage: NK IE, NACH BZ
     Route: 065
  8. CATAPRESAN [Suspect]
     Active Substance: CLONIDINE
     Dosage: 450 MILLIGRAM DAILY; 300 MG, 1?0?0.5?0
  9. METFORMIN [Concomitant]
     Active Substance: METFORMIN HYDROCHLORIDE
     Dosage: NK MG, 1?0?0?1
  10. ALLOPURINOL. [Concomitant]
     Active Substance: ALLOPURINOL
     Dosage: 300 MILLIGRAM DAILY; 300 MG, 1?0?0?0
  11. LANTUS [Concomitant]
     Active Substance: INSULIN GLARGINE
     Dosage: 24 IE, 0?0?1?0
     Route: 065

REACTIONS (3)
  - Drug prescribing error [Unknown]
  - Circulatory collapse [Unknown]
  - Asthenia [Unknown]
